FAERS Safety Report 5044601-9 (Version None)
Quarter: 2006Q3

REPORT INFORMATION
  Report Type: 
  Country: None (occurrence: None)
  Receive Date: 20060706
  Receipt Date: 20060307
  Transmission Date: 20061208
  Serious: Yes (Life-Threatening, Other)
  Sender: FDA-Public Use
  Company Number: AU-GLAXOSMITHKLINE-B0415147A

PATIENT
  Age: 2 Month
  Sex: Female

DRUGS (2)
  1. CHILDREN'S PANADOL COLOURFREE BABY DROPS [Suspect]
     Indication: PYREXIA
     Route: 048
     Dates: start: 20060208, end: 20060208
  2. VACCINATION [Concomitant]
     Dates: start: 20060207

REACTIONS (4)
  - CHOKING [None]
  - CIRCULATORY COLLAPSE [None]
  - COUGH [None]
  - PHARMACEUTICAL PRODUCT COMPLAINT [None]
